FAERS Safety Report 10956461 (Version 1)
Quarter: 2015Q1

REPORT INFORMATION
  Report Type: Spontaneous
  Country: US (occurrence: None)
  Receive Date: 20150325
  Receipt Date: 20150325
  Transmission Date: 20150721
  Serious: Yes (Other)
  Sender: FDA-Public Use
  Company Number: None

PATIENT
  Age: 83 Year
  Sex: Female

DRUGS (10)
  1. METHENAMINE [Concomitant]
     Active Substance: METHENAMINE
  2. MYRBETRIQ [Suspect]
     Active Substance: MIRABEGRON
     Indication: INCONTINENCE
     Dosage: 1 PILL  W/WATER
     Route: 048
     Dates: start: 20150307, end: 20150310
  3. RANITIDINE [Concomitant]
     Active Substance: RANITIDINE\RANITIDINE HYDROCHLORIDE
  4. FISH OIL [Concomitant]
     Active Substance: FISH OIL
  5. VIT. D. [Concomitant]
  6. FLONASE [Concomitant]
     Active Substance: FLUTICASONE PROPIONATE
  7. PREMARIN CREAM [Concomitant]
  8. PRESERVISION [Concomitant]
     Active Substance: MINERALS\VITAMINS
  9. NITROFURANTOIN MONO/MAC [Concomitant]
  10. CALCIUM [Concomitant]
     Active Substance: CALCIUM

REACTIONS (1)
  - Back pain [None]

NARRATIVE: CASE EVENT DATE: 20150309
